FAERS Safety Report 25818599 (Version 1)
Quarter: 2025Q3

REPORT INFORMATION
  Report Type: Report from Study
  Country: US (occurrence: US)
  Receive Date: 20250918
  Receipt Date: 20250918
  Transmission Date: 20251020
  Serious: Yes (Hospitalization, Other)
  Sender: GILEAD
  Company Number: US-GILEAD-2025-0725380

PATIENT
  Age: 60 Year
  Sex: Male

DRUGS (24)
  1. AZTREONAM LYSINE [Suspect]
     Active Substance: AZTREONAM LYSINE
     Indication: Cystic fibrosis lung
     Dosage: INHALE 1 ML (75 MG ) VIA NEBULIZER THREE TIMES DAILY FOR 28 DAY CYCLE ON, THEN 28 DAY CYCLE OFF
     Route: 055
     Dates: start: 20240904
  2. ALYFTREK [Concomitant]
     Active Substance: DEUTIVACAFTOR\TEZACAFTOR\VANZACAFTOR
  3. MORNIFLUMATE [Concomitant]
     Active Substance: MORNIFLUMATE
  4. XANAX [Concomitant]
     Active Substance: ALPRAZOLAM
  5. PRILOSEC [Concomitant]
     Active Substance: OMEPRAZOLE MAGNESIUM
  6. PROSCAR [Concomitant]
     Active Substance: FINASTERIDE
  7. CALCITRIOL [Concomitant]
     Active Substance: CALCITRIOL
  8. MINERALS\VITAMINS [Concomitant]
     Active Substance: MINERALS\VITAMINS
  9. CALCIUM\MAGNESIUM\VITAMIN D\ZINC [Concomitant]
     Active Substance: CALCIUM\MAGNESIUM\VITAMIN D\ZINC
  10. FLONASE SENSIMIST ALLERGY RELIEF [Concomitant]
     Active Substance: FLUTICASONE FUROATE
  11. HUMALOG [Concomitant]
     Active Substance: INSULIN LISPRO
  12. LANTUS SOLOSTAR [Concomitant]
     Active Substance: INSULIN GLARGINE
  13. CREON [Concomitant]
     Active Substance: PANCRELIPASE AMYLASE\PANCRELIPASE LIPASE\PANCRELIPASE PROTEASE
  14. LEXAPRO [Concomitant]
     Active Substance: ESCITALOPRAM OXALATE
  15. ASPIRIN [Concomitant]
     Active Substance: ASPIRIN
  16. ALBUTEROL [Concomitant]
     Active Substance: ALBUTEROL
  17. SYMBICORT [Concomitant]
     Active Substance: BUDESONIDE\FORMOTEROL FUMARATE DIHYDRATE
  18. MIRALAX [Concomitant]
     Active Substance: POLYETHYLENE GLYCOL 3350
  19. WELLBUTRIN [Concomitant]
     Active Substance: BUPROPION HYDROCHLORIDE
  20. METHOCARBAMOL [Concomitant]
     Active Substance: METHOCARBAMOL
  21. CITRACAL PLUS D [Concomitant]
  22. CIALIS [Concomitant]
     Active Substance: TADALAFIL
  23. VENTOLIN HFA [Concomitant]
     Active Substance: ALBUTEROL SULFATE
  24. BISACODYL [Concomitant]
     Active Substance: BISACODYL

REACTIONS (6)
  - Renal failure [Recovered/Resolved]
  - Distal intestinal obstruction syndrome [Not Recovered/Not Resolved]
  - Hypersensitivity [Unknown]
  - Sleep disorder [Not Recovered/Not Resolved]
  - Loss of personal independence in daily activities [Not Recovered/Not Resolved]
  - Social problem [Not Recovered/Not Resolved]
